FAERS Safety Report 12916202 (Version 1)
Quarter: 2016Q4

REPORT INFORMATION
  Report Type: Spontaneous
  Country: US (occurrence: US)
  Receive Date: 20161107
  Receipt Date: 20161107
  Transmission Date: 20170207
  Serious: Yes (Death)
  Sender: FDA-Public Use
  Company Number: US-HORIZON-PRE-0317-2016

PATIENT
  Age: 72 Year
  Sex: Female

DRUGS (3)
  1. MYCOPHENOLATE MOFETIL. [Suspect]
     Active Substance: MYCOPHENOLATE MOFETIL
     Indication: MYOSITIS
     Dosage: 1500 MG TWICE A DAY
  2. PREDNISONE. [Suspect]
     Active Substance: PREDNISONE
     Indication: MYOSITIS
     Dosage: 10 MG ONCE A DAY
  3. RITUXIMAB [Suspect]
     Active Substance: RITUXIMAB
     Indication: MYOSITIS
     Dosage: 2 DOSES 1000MG 2 WEEKS APART

REACTIONS (1)
  - Cerebral toxoplasmosis [Fatal]
